FAERS Safety Report 8391407-9 (Version None)
Quarter: 2012Q2

REPORT INFORMATION
  Report Type: 
  Country: None (occurrence: None)
  Receive Date: 20120529
  Receipt Date: 20120523
  Transmission Date: 20120825
  Serious: Yes (Hospitalization, Other)
  Sender: FDA-Public Use
  Company Number: US-JNJFOC-20120518508

PATIENT
  Age: 65 Year
  Sex: Female
  Weight: 58.51 kg

DRUGS (6)
  1. ANTITHYROID DRUG, UNSPECIFIED [Concomitant]
     Indication: THYROID DISORDER
     Route: 065
  2. MINOXIDIL [Suspect]
     Route: 061
  3. ROGAINE (FOR WOMEN) [Suspect]
     Route: 061
  4. ROGAINE (FOR WOMEN) [Suspect]
     Indication: HAIR GROWTH ABNORMAL
     Dosage: USED THE DRUG 6-8 YEARS AGO
     Route: 061
  5. DIURETIC [Concomitant]
     Route: 065
  6. MINOXIDIL [Suspect]
     Indication: HAIR GROWTH ABNORMAL
     Route: 061

REACTIONS (2)
  - MALIGNANT MELANOMA [None]
  - WRONG DRUG ADMINISTERED [None]
